FAERS Safety Report 9705662 (Version 1)
Quarter: 2013Q4

REPORT INFORMATION
  Report Type: Spontaneous
  Country: US (occurrence: US)
  Receive Date: 20131122
  Receipt Date: 20131122
  Transmission Date: 20140711
  Serious: No
  Sender: FDA-Public Use
  Company Number: US-GILEAD-2008-0017547

PATIENT
  Age: 77 Year
  Sex: Female

DRUGS (14)
  1. LETAIRIS [Suspect]
     Indication: PULMONARY HYPERTENSION
     Route: 048
     Dates: start: 20080626
  2. LASIX [Concomitant]
     Indication: OEDEMA
     Route: 048
  3. PROPRANOLOL [Concomitant]
     Indication: BLOOD PRESSURE
     Route: 048
  4. AVAPRO [Concomitant]
     Indication: BLOOD PRESSURE
     Route: 048
  5. PERSANTINE [Concomitant]
     Indication: ISCHAEMIC HEART DISEASE PROPHYLAXIS
     Route: 048
  6. ADVAIR [Concomitant]
     Indication: CHRONIC OBSTRUCTIVE PULMONARY DISEASE
     Route: 048
  7. ADVAIR [Concomitant]
     Indication: ASTHMA
  8. ADVAIR [Concomitant]
     Indication: PULMONARY HYPERTENSION
  9. LANOXIN [Concomitant]
     Indication: HEART RATE
     Route: 048
  10. COUMADIN [Concomitant]
     Indication: ANTICOAGULANT THERAPY
     Route: 048
  11. NEXIUM [Concomitant]
     Indication: DYSPEPSIA
     Route: 048
  12. FOSAMAX [Concomitant]
     Indication: OSTEOPOROSIS PROPHYLAXIS
     Route: 048
  13. FESO4 [Concomitant]
     Indication: MINERAL SUPPLEMENTATION
     Route: 048
  14. KCL [Concomitant]
     Indication: MINERAL SUPPLEMENTATION

REACTIONS (1)
  - Local swelling [Not Recovered/Not Resolved]
